FAERS Safety Report 6676365-7 (Version None)
Quarter: 2010Q2

REPORT INFORMATION
  Report Type: 
  Country: None (occurrence: None)
  Receive Date: 20100412
  Receipt Date: 20100401
  Transmission Date: 20101027
  Serious: Yes (Other)
  Sender: FDA-Public Use
  Company Number: JP-PFIZER INC-2010043042

PATIENT
  Age: 81 Year
  Sex: Male

DRUGS (2)
  1. SELARA [Suspect]
     Dosage: 50 MG, UNK
     Route: 048
     Dates: start: 20091001
  2. AMLODIPINE [Concomitant]

REACTIONS (1)
  - VISION BLURRED [None]
